FAERS Safety Report 7454615-7 (Version None)
Quarter: 2011Q2

REPORT INFORMATION
  Report Type: 
  Country: None (occurrence: None)
  Receive Date: 20110425
  Receipt Date: 20110408
  Transmission Date: 20111010
  Serious: Yes (Death)
  Sender: FDA-Public Use
  Company Number: 030417

PATIENT
  Sex: Male
  Weight: 85 kg

DRUGS (9)
  1. VIMPAT [Suspect]
     Indication: GLIOBLASTOMA
     Dosage: (200 MG BID INTRAVENOUS)
     Route: 042
     Dates: start: 20110208, end: 20110328
  2. VIMPAT [Suspect]
     Indication: EPILEPSY
     Dosage: (200 MG BID INTRAVENOUS)
     Route: 042
     Dates: start: 20110208, end: 20110328
  3. TOPIRAMATE [Suspect]
     Dosage: (SINGLE DOSE : 100; DAILY DOSE : 200 ORAL)
     Route: 048
     Dates: start: 20110311, end: 20110328
  4. PANTOPRAZOLE [Concomitant]
  5. KEPPRA [Suspect]
     Indication: GLIOBLASTOMA
     Dosage: (1500 MG BID INTRAVENOUS)
     Route: 042
     Dates: start: 20100106, end: 20110328
  6. KEPPRA [Suspect]
     Indication: EPILEPSY
     Dosage: (1500 MG BID INTRAVENOUS)
     Route: 042
     Dates: start: 20100106, end: 20110328
  7. FRISIUM [Concomitant]
  8. LEVOTHYROXINE SODIUM [Concomitant]
  9. ENOXAPARIN [Concomitant]

REACTIONS (2)
  - DISEASE RECURRENCE [None]
  - GLIOBLASTOMA [None]
